FAERS Safety Report 5922034-8 (Version None)
Quarter: 2008Q4

REPORT INFORMATION
  Report Type: 
  Country: None (occurrence: None)
  Receive Date: 20081017
  Receipt Date: 20081010
  Transmission Date: 20090506
  Serious: Yes (Hospitalization)
  Sender: FDA-Public Use
  Company Number: A0752409A

PATIENT
  Age: 56 Year
  Sex: Male
  Weight: 98.2 kg

DRUGS (12)
  1. AVANDIA [Suspect]
     Indication: DIABETES MELLITUS
     Dosage: 4MG PER DAY
     Route: 048
     Dates: start: 20020701, end: 20070201
  2. GLUCOPHAGE [Concomitant]
  3. LANTUS [Concomitant]
  4. GLUCOTROL XL [Concomitant]
  5. TOPROL-XL [Concomitant]
  6. LIPITOR [Concomitant]
  7. LOTREL [Concomitant]
  8. PROTONIX [Concomitant]
  9. NIASPAN [Concomitant]
  10. ALTACE [Concomitant]
  11. PRILOSEC [Concomitant]
  12. LOTENSIN [Concomitant]

REACTIONS (3)
  - CEREBROVASCULAR ACCIDENT [None]
  - MYOCARDIAL INFARCTION [None]
  - TRANSIENT ISCHAEMIC ATTACK [None]
